FAERS Safety Report 8289695-2 (Version None)
Quarter: 2012Q2

REPORT INFORMATION
  Report Type: 
  Country: None (occurrence: None)
  Receive Date: 20120417
  Receipt Date: 20120410
  Transmission Date: 20120825
  Serious: Yes (Hospitalization)
  Sender: FDA-Public Use
  Company Number: FR-ROCHE-671311

PATIENT
  Sex: Male

DRUGS (4)
  1. MABTHERA [Suspect]
     Dosage: FREQUENCY: 1. DATE OF LAST DOSE PRIOR TO SAE: 13 AUGUST 2009
     Route: 042
     Dates: start: 20090813, end: 20090820
  2. MABTHERA [Suspect]
     Indication: RHEUMATOID ARTHRITIS
     Dosage: PERMANENTLY DISCONTINUED. FREQUENCY: 1 FRIS. LAST DOSE PRIOR TO SAE: 05 AUGUST 2009.
     Route: 042
     Dates: start: 20090805, end: 20090805
  3. METHOTREXATE [Suspect]
     Indication: RHEUMATOID ARTHRITIS
     Route: 065
  4. INDOMETHACIN [Concomitant]
     Dosage: DRUG REPORTED AS CHRONID INDOCID

REACTIONS (1)
  - PLEURISY [None]
